FAERS Safety Report 24749115 (Version 1)
Quarter: 2024Q4

REPORT INFORMATION
  Report Type: Spontaneous
  Country: US (occurrence: None)
  Receive Date: 20241217
  Receipt Date: 20241217
  Transmission Date: 20250114
  Serious: Yes (Other)
  Sender: Public
  Company Number: None

PATIENT
  Age: 24 Year
  Sex: Female
  Weight: 105.23 kg

DRUGS (9)
  1. LILETTA [Suspect]
     Active Substance: LEVONORGESTREL
  2. ALBUTEROL [Concomitant]
     Active Substance: ALBUTEROL
  3. TRAZODONE [Concomitant]
     Active Substance: TRAZODONE HYDROCHLORIDE
  4. azelatine nasal spray [Concomitant]
  5. VITAMIN D3 [Concomitant]
     Active Substance: CHOLECALCIFEROL
  6. IRON [Concomitant]
     Active Substance: IRON
  7. BIOTIN [Concomitant]
     Active Substance: BIOTIN
  8. MAGNESIUM CITRATE [Concomitant]
     Active Substance: MAGNESIUM CITRATE
  9. INOSITOL [Concomitant]
     Active Substance: INOSITOL

REACTIONS (6)
  - Vaginal haemorrhage [None]
  - Haemorrhage [None]
  - Thrombosis [None]
  - Pelvic inflammatory disease [None]
  - Sexually transmitted disease [None]
  - Decidual cast [None]

NARRATIVE: CASE EVENT DATE: 20241210
